FAERS Safety Report 17709137 (Version 1)
Quarter: 2020Q2

REPORT INFORMATION
  Report Type: Spontaneous
  Country: FR (occurrence: FR)
  Receive Date: 20200426
  Receipt Date: 20200426
  Transmission Date: 20200714
  Serious: Yes (Hospitalization)
  Sender: FDA-Public Use
  Company Number: NVSC2020FR110233

PATIENT
  Age: 38 Year
  Sex: Male

DRUGS (6)
  1. RITALINE L.P. [Suspect]
     Active Substance: METHYLPHENIDATE HYDROCHLORIDE
     Indication: DRUG USE DISORDER
     Dosage: 4 DF, QD
     Route: 042
     Dates: start: 2018
  2. METHADONE AP HP [Suspect]
     Active Substance: METHADONE HYDROCHLORIDE
     Indication: DRUG WITHDRAWAL MAINTENANCE THERAPY
     Dosage: 200 MG, QD
     Route: 042
  3. SKENAN [Suspect]
     Active Substance: MORPHINE SULFATE
     Indication: DRUG USE DISORDER
     Dosage: 3 DF, QD
     Route: 042
  4. SERESTA [Concomitant]
     Active Substance: OXAZEPAM
     Indication: PRODUCT USED FOR UNKNOWN INDICATION
     Dosage: 10 MG
     Route: 065
  5. STILNOX [Concomitant]
     Active Substance: ZOLPIDEM TARTRATE
     Indication: PRODUCT USED FOR UNKNOWN INDICATION
     Dosage: 10 MG
     Route: 065
  6. ABILIFY [Concomitant]
     Active Substance: ARIPIPRAZOLE
     Indication: PRODUCT USED FOR UNKNOWN INDICATION
     Route: 065

REACTIONS (1)
  - Dermo-hypodermitis [Recovering/Resolving]

NARRATIVE: CASE EVENT DATE: 201911
